FAERS Safety Report 15374914 (Version 2)
Quarter: 2018Q4

REPORT INFORMATION
  Report Type: Spontaneous
  Country: US (occurrence: US)
  Receive Date: 20180912
  Receipt Date: 20181017
  Transmission Date: 20190204
  Serious: No
  Sender: FDA-Public Use
  Company Number: US-009507513-1808USA013607

PATIENT
  Sex: Male

DRUGS (1)
  1. ASMANEX [Suspect]
     Active Substance: MOMETASONE FUROATE
     Dosage: UNK
     Route: 055
     Dates: start: 20180828

REACTIONS (4)
  - Circumstance or information capable of leading to medication error [Unknown]
  - Product dose omission [Unknown]
  - No adverse event [Unknown]
  - Product administration error [Unknown]

NARRATIVE: CASE EVENT DATE: 20180828
